FAERS Safety Report 7931022-1 (Version None)
Quarter: 2011Q4

REPORT INFORMATION
  Report Type: 
  Country: None (occurrence: None)
  Receive Date: 20111121
  Receipt Date: 20111114
  Transmission Date: 20120403
  Serious: Yes (Other)
  Sender: FDA-Public Use
  Company Number: PHHY2011BR100634

PATIENT
  Age: 28 Year
  Sex: Male

DRUGS (2)
  1. METHYLPREDNISOLONE [Suspect]
     Dosage: 60 MG/KG PER DAY
  2. METHYLPREDNISOLONE [Suspect]
     Dosage: 20 MG, DAILY

REACTIONS (1)
  - MUSCLE CONTRACTIONS INVOLUNTARY [None]
